FAERS Safety Report 14111766 (Version 1)
Quarter: 2017Q4

REPORT INFORMATION
  Report Type: Spontaneous
  Country: US (occurrence: US)
  Receive Date: 20171020
  Receipt Date: 20171020
  Transmission Date: 20180321
  Serious: Yes (Disabling)
  Sender: FDA-Public Use
  Company Number: None

PATIENT
  Age: 19 Year
  Sex: Female
  Weight: 53.73 kg

DRUGS (3)
  1. SUMATRIPTAN. [Concomitant]
     Active Substance: SUMATRIPTAN
  2. NUVARING [Suspect]
     Active Substance: ETHINYL ESTRADIOL\ETONOGESTREL
     Indication: CONTRACEPTION
     Dosage: ?          QUANTITY:1 RING;OTHER FREQUENCY:1 RING PER MONTH;?
     Route: 067
     Dates: start: 20170317, end: 20171020
  3. NORTRIPTYLINE [Concomitant]
     Active Substance: NORTRIPTYLINE

REACTIONS (12)
  - Vulval disorder [None]
  - Depression [None]
  - Rash erythematous [None]
  - Exposure via partner [None]
  - Dysuria [None]
  - Urethritis noninfective [None]
  - Penis disorder [None]
  - Urinary tract infection [None]
  - Swelling [None]
  - Vaginal discharge [None]
  - Genital rash [None]
  - Tenderness [None]

NARRATIVE: CASE EVENT DATE: 20170517
